FAERS Safety Report 14715617 (Version 1)
Quarter: 2018Q2

REPORT INFORMATION
  Report Type: Spontaneous
  Country: US (occurrence: US)
  Receive Date: 20180404
  Receipt Date: 20180404
  Transmission Date: 20180711
  Serious: Yes (Hospitalization, Other)
  Sender: FDA-Public Use
  Company Number: US-GLAXOSMITHKLINE-US2018GSK057407

PATIENT
  Sex: Male

DRUGS (3)
  1. VENTOLIN [Suspect]
     Active Substance: ALBUTEROL SULFATE
     Indication: BRONCHITIS
  2. VENTOLIN [Suspect]
     Active Substance: ALBUTEROL SULFATE
     Indication: DYSPNOEA
     Route: 055
  3. VENTOLIN [Suspect]
     Active Substance: ALBUTEROL SULFATE
     Indication: PNEUMONIA

REACTIONS (5)
  - Cardiac operation [Unknown]
  - Pneumonia [Unknown]
  - Apparent death [Unknown]
  - Inability to afford medication [Unknown]
  - Dyspnoea [Unknown]

NARRATIVE: CASE EVENT DATE: 201801
